FAERS Safety Report 21159589 (Version 7)
Quarter: 2023Q2

REPORT INFORMATION
  Report Type: Report from Study
  Country: CO (occurrence: CO)
  Receive Date: 20220802
  Receipt Date: 20230502
  Transmission Date: 20230721
  Serious: Yes (Other)
  Sender: FDA-Public Use
  Company Number: CO-AMGEN-COLSL2022130917

PATIENT
  Age: 80 Year
  Sex: Male

DRUGS (3)
  1. VECTIBIX [Suspect]
     Active Substance: PANITUMUMAB
     Indication: Colorectal cancer metastatic
     Dosage: 100 MILLIGRAM, Q2WK
     Route: 042
     Dates: start: 20220624
  2. Artificial tears [Concomitant]
     Indication: Product used for unknown indication
     Dosage: UNK UNK, Q12H (APPLY A DROP IN EACH EYE EVERY 12 HOURS)
     Route: 061
  3. LAGRIMAS ISOTONICAS [Concomitant]
     Dosage: 1 DROP, BID (IN EACH EYE)

REACTIONS (12)
  - Rectal haemorrhage [Recovered/Resolved]
  - Skin reaction [Unknown]
  - Skin haemorrhage [Not Recovered/Not Resolved]
  - Pain in extremity [Not Recovered/Not Resolved]
  - Epistaxis [Recovered/Resolved]
  - Rash [Not Recovered/Not Resolved]
  - Skin fissures [Not Recovered/Not Resolved]
  - Dry skin [Not Recovered/Not Resolved]
  - Acne [Recovered/Resolved]
  - Influenza [Not Recovered/Not Resolved]
  - Blood creatinine abnormal [Not Recovered/Not Resolved]
  - Spinal pain [Not Recovered/Not Resolved]

NARRATIVE: CASE EVENT DATE: 20220101
